FAERS Safety Report 12706663 (Version 1)
Quarter: 2016Q3

REPORT INFORMATION
  Report Type: Spontaneous
  Country: US (occurrence: US)
  Receive Date: 20160901
  Receipt Date: 20160901
  Transmission Date: 20161109
  Serious: No
  Sender: FDA-Public Use
  Company Number: US-BAYER-2016-161789

PATIENT
  Age: 57 Year
  Sex: Female
  Weight: 65.76 kg

DRUGS (4)
  1. CLARITIN [Suspect]
     Active Substance: LORATADINE
     Indication: SEASONAL ALLERGY
  2. CALCIUM [Concomitant]
     Active Substance: CALCIUM
  3. CLARITIN-D 12 HOUR [Suspect]
     Active Substance: LORATADINE\PSEUDOEPHEDRINE SULFATE
     Indication: SEASONAL ALLERGY
     Dosage: 1 DF, QD
     Route: 048
  4. FISH OIL [Concomitant]
     Active Substance: FISH OIL

REACTIONS (4)
  - Therapeutic response unexpected [None]
  - Product use issue [None]
  - Dyspnoea [None]
  - Sleep disorder [None]
